FAERS Safety Report 20069291 (Version 1)
Quarter: 2021Q4

REPORT INFORMATION
  Report Type: Spontaneous
  Country: US (occurrence: None)
  Receive Date: 20211112
  Receipt Date: 20211112
  Transmission Date: 20220303
  Serious: Yes (Hospitalization)
  Sender: FDA-Public Use
  Company Number: None

PATIENT
  Age: 71 Year
  Sex: Female
  Weight: 104 kg

DRUGS (1)
  1. APIXABAN [Suspect]
     Active Substance: APIXABAN
     Dates: start: 20200309

REACTIONS (5)
  - Haemorrhage [None]
  - Gastric haemorrhage [None]
  - Gastritis [None]
  - Stress [None]
  - Haemoglobin decreased [None]

NARRATIVE: CASE EVENT DATE: 20210712
